FAERS Safety Report 24797579 (Version 2)
Quarter: 2025Q1

REPORT INFORMATION
  Report Type: Spontaneous
  Country: US (occurrence: US)
  Receive Date: 20250102
  Receipt Date: 20250203
  Transmission Date: 20250409
  Serious: No
  Sender: SANOFI AVENTIS
  Company Number: US-SA-2024SA384996

PATIENT
  Age: 78 Year
  Sex: Female

DRUGS (9)
  1. REZUROCK [Suspect]
     Active Substance: BELUMOSUDIL
     Indication: Graft versus host disease
     Dosage: 200 MG, QD
     Route: 048
  2. FAMOTIDINE [Concomitant]
     Active Substance: FAMOTIDINE
  3. CRESEMBA [Concomitant]
     Active Substance: ISAVUCONAZONIUM SULFATE
  4. ATOVAQUONE [Concomitant]
     Active Substance: ATOVAQUONE
  5. ACYCLOVIR [Concomitant]
     Active Substance: ACYCLOVIR
  6. GABAPENTIN [Concomitant]
     Active Substance: GABAPENTIN
  7. LEXAPRO [Concomitant]
     Active Substance: ESCITALOPRAM OXALATE
  8. PREDNISONE [Concomitant]
     Active Substance: PREDNISONE
  9. SIROLIMUS [Concomitant]
     Active Substance: SIROLIMUS

REACTIONS (2)
  - Fall [Unknown]
  - Diarrhoea [Unknown]
